FAERS Safety Report 9380611 (Version 1)
Quarter: 2013Q2

REPORT INFORMATION
  Report Type: Spontaneous
  Country: US (occurrence: None)
  Receive Date: 20130628
  Receipt Date: 20130628
  Transmission Date: 20140414
  Serious: No
  Sender: FDA-Public Use
  Company Number: TIR-02220

PATIENT
  Age: 63 Year
  Sex: Female
  Weight: 90.72 kg

DRUGS (4)
  1. TIROSINT [Suspect]
     Indication: HYPOTHYROIDISM
     Dosage: 137 CAPSULES
     Route: 048
     Dates: start: 201305, end: 201306
  2. FLOVENT (FLUTICASONE PROPIONATE) [Concomitant]
  3. NASONEX (MOMETASONE FUROATE MONOHYDRATE) [Concomitant]
  4. VITAMIN C [Concomitant]

REACTIONS (5)
  - Platelet count decreased [None]
  - Arthralgia [None]
  - Myalgia [None]
  - Purpura [None]
  - Petechiae [None]
